FAERS Safety Report 11626298 (Version 1)
Quarter: 2015Q4

REPORT INFORMATION
  Report Type: Spontaneous
  Country: US (occurrence: US)
  Receive Date: 20151013
  Receipt Date: 20151013
  Transmission Date: 20160304
  Serious: Yes (Other)
  Sender: FDA-Public Use
  Company Number: US-BAUSCH-BL-2015-023375

PATIENT
  Sex: Female

DRUGS (1)
  1. SOOTHE HYDRATION [Suspect]
     Active Substance: POVIDONE
     Indication: DRY EYE
     Dosage: USED ONCE
     Route: 047
     Dates: start: 2015, end: 2015

REACTIONS (2)
  - Surgery [Unknown]
  - Burning sensation [Recovered/Resolved]

NARRATIVE: CASE EVENT DATE: 2015
